FAERS Safety Report 11853273 (Version 2)
Quarter: 2016Q1

REPORT INFORMATION
  Report Type: Spontaneous
  Country: US (occurrence: US)
  Receive Date: 20151218
  Receipt Date: 20160310
  Transmission Date: 20160526
  Serious: No
  Sender: FDA-Public Use
  Company Number: US-OTSUKA-2015_013440

PATIENT
  Age: 50 Year
  Sex: Male
  Weight: 141 kg

DRUGS (2)
  1. ABILIFY MAINTENA [Suspect]
     Active Substance: ARIPIPRAZOLE
     Dosage: 400 MG,EVERY 3 WEEKS
     Route: 030
     Dates: start: 201503, end: 201511
  2. ABILIFY MAINTENA [Suspect]
     Active Substance: ARIPIPRAZOLE
     Indication: SCHIZOAFFECTIVE DISORDER
     Dosage: 400 MG, QM
     Route: 030

REACTIONS (4)
  - Drug effect decreased [Not Recovered/Not Resolved]
  - No adverse event [Unknown]
  - Inappropriate schedule of drug administration [Unknown]
  - Drug monitoring procedure incorrectly performed [Unknown]
